FAERS Safety Report 14772984 (Version 5)
Quarter: 2021Q2

REPORT INFORMATION
  Report Type: Report from Study
  Country: CN (occurrence: CN)
  Receive Date: 20180418
  Receipt Date: 20210629
  Transmission Date: 20210716
  Serious: Yes (Hospitalization)
  Sender: FDA-Public Use
  Company Number: CN-ROCHE-2106553

PATIENT
  Age: 47 Year
  Sex: Male
  Weight: 62 kg

DRUGS (13)
  1. AMBROXOL HYDROCHLORIDE [Concomitant]
     Active Substance: AMBROXOL HYDROCHLORIDE
     Indication: COUGH
     Dates: start: 20180409, end: 20180416
  2. VITAMIN B6 [Concomitant]
     Active Substance: PYRIDOXINE HYDROCHLORIDE
     Indication: VITAMIN SUPPLEMENTATION
     Dates: start: 20180409, end: 20180416
  3. CEFODIZIME SODIUM [Concomitant]
     Active Substance: CEFODIZIME SODIUM
     Dates: start: 20180409, end: 20180416
  4. PREDNISONE ACETATE [Concomitant]
     Active Substance: PREDNISONE ACETATE
     Indication: ARTHRALGIA
     Route: 048
     Dates: start: 20180330, end: 20180406
  5. BICYCLOL [Concomitant]
     Active Substance: BICYCLOL
     Dates: start: 20161109
  6. POLYENE PHOSPHATIDYLCHOLINE [Concomitant]
     Active Substance: PHOSPHOLIPID
     Dates: start: 20171021, end: 20180123
  7. CEFTRIAXONE. [Concomitant]
     Active Substance: CEFTRIAXONE
  8. CARBAZOCHROME SODIUM SULFONATE;SODIUM CHLORIDE [Concomitant]
     Indication: HAEMOSTASIS
     Dates: start: 20180409, end: 20180416
  9. COMPOUND METHOXYPHENAMINE [Concomitant]
     Indication: COUGH
     Dates: start: 20180409, end: 20180416
  10. VITAMIN C [Concomitant]
     Active Substance: ASCORBIC ACID
     Indication: VITAMIN SUPPLEMENTATION
     Dates: start: 20180409, end: 20180416
  11. LEUCOGEN (CHINA) [Concomitant]
     Indication: WHITE BLOOD CELL COUNT DECREASED
     Dates: start: 20170819, end: 20190708
  12. ATEZOLIZUMAB. [Suspect]
     Active Substance: ATEZOLIZUMAB
     Indication: NON-SMALL CELL LUNG CANCER
     Dosage: ON DAY 1 OF EACH 21?DAY CYCLE?MOST RECENT DOSE OF ATEZOLIZUMAB PRIOR TO AE ONSET: 20/MAR/2018 (1200
     Route: 042
     Dates: start: 20161111
  13. CALCIUM GLUCONATE. [Concomitant]
     Active Substance: CALCIUM GLUCONATE
     Indication: MINERAL SUPPLEMENTATION
     Dates: start: 20180409, end: 20180416

REACTIONS (1)
  - Testicular pain [Recovered/Resolved]

NARRATIVE: CASE EVENT DATE: 201802
